FAERS Safety Report 6702714-7 (Version None)
Quarter: 2010Q2

REPORT INFORMATION
  Report Type: 
  Country: None (occurrence: None)
  Receive Date: 20100429
  Receipt Date: 20100419
  Transmission Date: 20101027
  Serious: No
  Sender: FDA-Public Use
  Company Number: US-B.I. PHARMACEUTICALS,INC./RIDGEFIELD-2010-BP-04562BP

PATIENT
  Sex: Female

DRUGS (6)
  1. COMBIVENT [Suspect]
     Indication: DYSPNOEA
     Route: 055
     Dates: start: 20000101, end: 20100301
  2. COMBIVENT [Suspect]
     Dosage: 2 PUF
     Route: 055
     Dates: start: 20100301
  3. AVAPRO [Concomitant]
     Indication: HYPERTENSION
  4. HYDROCHLOROTHIAZIDE [Concomitant]
     Indication: HYPERTENSION
  5. ASPIRIN [Concomitant]
     Indication: PROPHYLAXIS
  6. ALLERTEC [Concomitant]
     Indication: HYPERSENSITIVITY

REACTIONS (2)
  - DYSPNOEA [None]
  - GASTRIC DISORDER [None]
